FAERS Safety Report 5149368-1 (Version None)
Quarter: 2006Q4

REPORT INFORMATION
  Report Type: 
  Country: None (occurrence: None)
  Receive Date: 20061113
  Receipt Date: 20051128
  Transmission Date: 20070319
  Serious: No
  Sender: FDA-Public Use
  Company Number: 426514

PATIENT
  Age: 79 Year
  Sex: Female

DRUGS (10)
  1. COREG [Suspect]
     Dosage: 12.5MG TWICE PER DAY
     Route: 048
     Dates: start: 20040101
  2. PREVACID [Concomitant]
  3. COLACE [Concomitant]
  4. LEVOTHROID [Concomitant]
  5. LANOXIN [Concomitant]
  6. ISOSORBIDE [Concomitant]
  7. VITAMINS [Concomitant]
  8. ASPIRIN [Concomitant]
  9. FOLIC ACID [Concomitant]
  10. TRICOR [Concomitant]

REACTIONS (1)
  - PRURITUS [None]
